FAERS Safety Report 16097787 (Version 3)
Quarter: 2019Q2

REPORT INFORMATION
  Report Type: Spontaneous
  Country: JP (occurrence: JP)
  Receive Date: 20190320
  Receipt Date: 20190403
  Transmission Date: 20190711
  Serious: Yes (Death, Disabling, Other)
  Sender: FDA-Public Use
  Company Number: JP-ASTRAZENECA-2019SE43537

PATIENT
  Age: 19353 Day
  Sex: Female
  Weight: 30 kg

DRUGS (2)
  1. TAGRISSO [Suspect]
     Active Substance: OSIMERTINIB
     Indication: NON-SMALL CELL LUNG CANCER
     Route: 048
     Dates: start: 20170203, end: 20180927
  2. E KEPPRA [Suspect]
     Active Substance: LEVETIRACETAM
     Dosage: DOSE UNKNOWN
     Route: 048
     Dates: start: 20150811, end: 20180927

REACTIONS (4)
  - Metastases to meninges [Fatal]
  - Malignant neoplasm progression [Fatal]
  - Metastases to central nervous system [Fatal]
  - Decreased appetite [Not Recovered/Not Resolved]

NARRATIVE: CASE EVENT DATE: 20170707
